FAERS Safety Report 5957211-3 (Version None)
Quarter: 2008Q4

REPORT INFORMATION
  Report Type: 
  Country: None (occurrence: None)
  Receive Date: 20081117
  Receipt Date: 20081117
  Transmission Date: 20090506
  Serious: Yes (Death)
  Sender: FDA-Public Use
  Company Number: None

PATIENT
  Sex: Male

DRUGS (11)
  1. MORPHINE SULFATE [Suspect]
     Indication: PAIN
     Dosage: 15MG 1-2 EVERY 4 HR AS NEEDED ORAL
     Dates: end: 20080822
  2. LOVENOX [Concomitant]
  3. NEXIUM [Concomitant]
  4. KYTRIL [Concomitant]
  5. GLIPIZIDE [Concomitant]
  6. ATENOLOL [Concomitant]
  7. DEXAMETHASONE [Concomitant]
  8. KLOR-CON M [Concomitant]
  9. MAXZIDE [Concomitant]
  10. PROMETHAZINE [Concomitant]
  11. LOMOTIL [Concomitant]

REACTIONS (1)
  - PRODUCT QUALITY ISSUE [None]
